FAERS Safety Report 23549708 (Version 1)
Quarter: 2024Q1

REPORT INFORMATION
  Report Type: Spontaneous
  Country: US (occurrence: None)
  Receive Date: 20240220
  Receipt Date: 20240220
  Transmission Date: 20240410
  Serious: Yes (Hospitalization)
  Sender: FDA-Public Use
  Company Number: None

PATIENT
  Sex: Female

DRUGS (1)
  1. TOBRAMYCIN [Suspect]
     Active Substance: TOBRAMYCIN
     Indication: Bronchiectasis
     Dosage: OTHER FREQUENCY : 28 D ON, 28 OFF;?OTHER ROUTE : VIA NEBULIZER;?
     Route: 050
     Dates: start: 202201

REACTIONS (1)
  - Hospitalisation [None]
